FAERS Safety Report 20668445 (Version 4)
Quarter: 2022Q2

REPORT INFORMATION
  Report Type: Spontaneous
  Country: HU (occurrence: HU)
  Receive Date: 20220404
  Receipt Date: 20220624
  Transmission Date: 20220721
  Serious: Yes (Death, Hospitalization, Other)
  Sender: FDA-Public Use
  Company Number: HU-002147023-NVSC2022HU048523

PATIENT
  Age: 71 Year
  Sex: Male

DRUGS (12)
  1. AZACITIDINE [Suspect]
     Active Substance: AZACITIDINE
     Indication: Acute myeloid leukaemia
     Dosage: UNK
     Route: 065
  2. AZACITIDINE [Suspect]
     Active Substance: AZACITIDINE
     Dosage: 70 MILLIGRAM
     Route: 065
     Dates: start: 2021
  3. LENALIDOMIDE [Suspect]
     Active Substance: LENALIDOMIDE
     Indication: Myelodysplastic syndrome
     Dosage: UNK (EIGHT CYCLES)
     Route: 048
  4. VENETOCLAX [Suspect]
     Active Substance: VENETOCLAX
     Indication: Acute myeloid leukaemia
     Dosage: UNK
     Route: 048
  5. VENETOCLAX [Suspect]
     Active Substance: VENETOCLAX
     Dosage: 400 MILLIGRAM, QD
     Route: 065
     Dates: start: 2021
  6. VENETOCLAX [Suspect]
     Active Substance: VENETOCLAX
     Indication: Acute myeloid leukaemia
     Dosage: UNK
     Route: 048
  7. HYDROXYUREA [Concomitant]
     Active Substance: HYDROXYUREA
     Indication: Cytoreductive surgery
     Dosage: UNK
     Route: 065
  8. NILOTINIB [Concomitant]
     Active Substance: NILOTINIB
     Indication: Philadelphia positive chronic myeloid leukaemia
     Dosage: UNK
     Route: 065
  9. NILOTINIB [Concomitant]
     Active Substance: NILOTINIB
     Dosage: 300 MILLIGRAM (2X150 MG)
     Route: 065
     Dates: start: 2021
  10. NILOTINIB [Concomitant]
     Active Substance: NILOTINIB
     Dosage: 600 MILLIGRAM, (2X300 MG)
     Route: 065
     Dates: start: 202009
  11. LENALIDOMIDE [Concomitant]
     Active Substance: LENALIDOMIDE
     Indication: Myelodysplastic syndrome
     Dosage: 10 MILLIGRAM, QD
     Route: 065
     Dates: start: 202010
  12. LENALIDOMIDE [Concomitant]
     Active Substance: LENALIDOMIDE
     Dosage: UNK
     Route: 065
     Dates: start: 2021

REACTIONS (9)
  - Sepsis [Fatal]
  - Neutropenia [Fatal]
  - Anaemia [Unknown]
  - Transformation to acute myeloid leukaemia [Unknown]
  - Angina pectoris [Unknown]
  - Chronic myeloid leukaemia [Unknown]
  - Leukocytosis [Unknown]
  - Pancytopenia [Unknown]
  - Febrile neutropenia [Unknown]

NARRATIVE: CASE EVENT DATE: 20200701
